FAERS Safety Report 6724282-6 (Version None)
Quarter: 2010Q2

REPORT INFORMATION
  Report Type: 
  Country: None (occurrence: None)
  Receive Date: 20100513
  Receipt Date: 20100506
  Transmission Date: 20101027
  Serious: Yes (Other)
  Sender: FDA-Public Use
  Company Number: US-JNJCH-2010011273

PATIENT
  Age: 6 Year
  Sex: Female
  Weight: 29.5 kg

DRUGS (1)
  1. CHILDREN'S ZYRTEC ALLERGY [Suspect]
     Indication: HYPERSENSITIVITY
     Dosage: TEXT:TWO TIMES PER DAY
     Route: 048

REACTIONS (2)
  - PERSONALITY CHANGE [None]
  - PRODUCT QUALITY ISSUE [None]
